FAERS Safety Report 13127403 (Version 1)
Quarter: 2017Q1

REPORT INFORMATION
  Report Type: Spontaneous
  Country: US (occurrence: US)
  Receive Date: 20170118
  Receipt Date: 20170118
  Transmission Date: 20170428
  Serious: No
  Sender: FDA-Public Use
  Company Number: US-ROCHE-1784257

PATIENT
  Age: 33 Year
  Sex: Female

DRUGS (14)
  1. CLONAZEPAM. [Concomitant]
     Active Substance: CLONAZEPAM
     Route: 065
  2. TYLENOL #1 (UNITED STATES) [Concomitant]
     Dosage: (2) PRE-MEDICATION
     Route: 065
  3. MODAFINIL. [Concomitant]
     Active Substance: MODAFINIL
     Dosage: 200
     Route: 065
  4. CLARINEX [Concomitant]
     Active Substance: DESLORATADINE
     Route: 065
  5. NASONEX [Concomitant]
     Active Substance: MOMETASONE FUROATE
     Dosage: 2 PUFFS EACH NOSTRIL ONCE A DAY
     Route: 065
  6. ADDERALL [Concomitant]
     Active Substance: AMPHETAMINE ASPARTATE\AMPHETAMINE SULFATE\DEXTROAMPHETAMINE SACCHARATE\DEXTROAMPHETAMINE SULFATE
     Dosage: 5 TIMES A WEEK
     Route: 065
  7. PEPCID [Concomitant]
     Active Substance: FAMOTIDINE
     Dosage: PRE-MEDICATION
     Route: 065
  8. RITUXAN [Suspect]
     Active Substance: RITUXIMAB
     Indication: MULTIPLE SCLEROSIS
     Dosage: 2 DOSES 2 WEEKS APART EVERY 6 MONTHS
     Route: 042
     Dates: start: 201411
  9. WELLBUTRIN [Concomitant]
     Active Substance: BUPROPION HYDROCHLORIDE
     Route: 065
  10. DULERA [Concomitant]
     Active Substance: FORMOTEROL FUMARATE DIHYDRATE\MOMETASONE FUROATE
     Dosage: ONCE EVERY MORNING
     Route: 065
  11. PREDNISONE. [Concomitant]
     Active Substance: PREDNISONE
     Dosage: DAY BEFORE, DAY OF, DAY AFTER TREATMENT
     Route: 065
  12. SINGULAIR [Concomitant]
     Active Substance: MONTELUKAST SODIUM
     Dosage: PRE-MEDICATION
     Route: 065
  13. BENADRYL [Concomitant]
     Active Substance: DIPHENHYDRAMINE HYDROCHLORIDE
     Dosage: PRE-MEDICATION
     Route: 065
  14. ATIVAN [Concomitant]
     Active Substance: LORAZEPAM
     Dosage: PR-MEDICATION
     Route: 065

REACTIONS (3)
  - Chest discomfort [Recovered/Resolved]
  - Pruritus [Recovered/Resolved]
  - Skin burning sensation [Recovered/Resolved]

NARRATIVE: CASE EVENT DATE: 201411
